FAERS Safety Report 14660561 (Version 2)
Quarter: 2018Q2

REPORT INFORMATION
  Report Type: Spontaneous
  Country: US (occurrence: US)
  Receive Date: 20180320
  Receipt Date: 20180409
  Transmission Date: 20180711
  Serious: Yes (Other)
  Sender: FDA-Public Use
  Company Number: US-BAYER-2018-047133

PATIENT
  Age: 41 Year
  Sex: Female

DRUGS (3)
  1. MIRENA [Suspect]
     Active Substance: LEVONORGESTREL
     Indication: MENORRHAGIA
     Dosage: 20 MCG/24HR, CONT
     Route: 015
     Dates: start: 20171207, end: 20180309
  2. DEPO-PROVERA [Concomitant]
     Active Substance: MEDROXYPROGESTERONE ACETATE
     Dosage: UNK
     Dates: start: 20180309
  3. MIRENA [Suspect]
     Active Substance: LEVONORGESTREL
     Indication: MENORRHAGIA

REACTIONS (9)
  - Medical device discomfort [None]
  - Device expulsion [None]
  - Haemoglobin decreased [None]
  - Feeling abnormal [Unknown]
  - Blood iron decreased [None]
  - Dyspnoea [None]
  - Genital haemorrhage [Recovering/Resolving]
  - Medical device site pain [None]
  - Dizziness [None]
